FAERS Safety Report 10534457 (Version 2)
Quarter: 2014Q4

REPORT INFORMATION
  Report Type: Spontaneous
  Country: US (occurrence: US)
  Receive Date: 20141022
  Receipt Date: 20141022
  Transmission Date: 20150529
  Serious: No
  Sender: FDA-Public Use
  Company Number: US-B.I. PHARMACEUTICALS,INC./RIDGEFIELD-2014-BI-47507BP

PATIENT
  Age: 52 Year
  Sex: Male

DRUGS (1)
  1. PRADAXA [Suspect]
     Active Substance: DABIGATRAN ETEXILATE MESYLATE
     Indication: PRODUCT USED FOR UNKNOWN INDICATION
     Dosage: 150 MG
     Route: 048
     Dates: end: 201210

REACTIONS (12)
  - Haemoptysis [Unknown]
  - Dyspnoea [Unknown]
  - Wheezing [Unknown]
  - Gastrointestinal pain [Unknown]
  - Myalgia [Unknown]
  - Chest pain [Unknown]
  - Urinary tract infection [Unknown]
  - Cough [Unknown]
  - Haematuria [Unknown]
  - Arthralgia [Unknown]
  - Nausea [Unknown]
  - Vomiting [Unknown]

NARRATIVE: CASE EVENT DATE: 201210
